FAERS Safety Report 7631790-2 (Version None)
Quarter: 2011Q3

REPORT INFORMATION
  Report Type: 
  Country: None (occurrence: None)
  Receive Date: 20110725
  Receipt Date: 20110322
  Transmission Date: 20111222
  Serious: No
  Sender: FDA-Public Use
  Company Number: US-BRISTOL-MYERS SQUIBB COMPANY-15625072

PATIENT
  Age: 76 Year
  Sex: Female
  Weight: 95 kg

DRUGS (3)
  1. AVAPRO [Concomitant]
  2. TOPROL-XL [Concomitant]
  3. WARFARIN SODIUM [Suspect]
     Dosage: ON MONDAY 5MG ALSO 2.5MG
     Dates: start: 20101223

REACTIONS (3)
  - PRURITUS [None]
  - EYE SWELLING [None]
  - DIZZINESS [None]
